FAERS Safety Report 25537439 (Version 4)
Quarter: 2025Q3

REPORT INFORMATION
  Report Type: Spontaneous
  Country: EU (occurrence: EU)
  Receive Date: 20250710
  Receipt Date: 20250730
  Transmission Date: 20251020
  Serious: Yes (Life-Threatening, Hospitalization, Other)
  Sender: AUROBINDO
  Company Number: EU-MEDO2008-002817

PATIENT
  Age: 72 Year
  Sex: Female

DRUGS (1)
  1. METFORMIN [Suspect]
     Active Substance: METFORMIN HYDROCHLORIDE
     Indication: Type 2 diabetes mellitus
     Route: 065

REACTIONS (19)
  - Acute kidney injury [Recovered/Resolved]
  - Lactic acidosis [Recovered/Resolved]
  - Toxicity to various agents [Recovered/Resolved]
  - Septic shock [Recovered/Resolved]
  - Poisoning [Recovered/Resolved]
  - Pneumonia [Unknown]
  - Hypotension [Recovered/Resolved]
  - Mental status changes [Recovered/Resolved]
  - Hyperlactacidaemia [Recovered/Resolved]
  - Pallor [Recovered/Resolved]
  - Livedo reticularis [Recovered/Resolved]
  - Hypothermia [Recovered/Resolved]
  - Anuria [Recovered/Resolved]
  - Hyperkalaemia [Recovered/Resolved]
  - Chronic kidney disease [Recovered/Resolved]
  - Metabolic acidosis [Recovered/Resolved]
  - Azotaemia [Recovered/Resolved]
  - Inflammatory marker increased [Recovered/Resolved]
  - Septic shock [Recovered/Resolved]
